FAERS Safety Report 4356722-4 (Version None)
Quarter: 2004Q2

REPORT INFORMATION
  Report Type: 
  Country: None (occurrence: None)
  Receive Date: 20040507
  Receipt Date: 20040426
  Transmission Date: 20050107
  Serious: Yes (Hospitalization)
  Sender: FDA-Public Use
  Company Number: HQWYE377607APR04

PATIENT
  Age: 58 Year
  Sex: Female
  Weight: 58.11 kg

DRUGS (3)
  1. PREMARIN [Suspect]
     Indication: OESTROGEN REPLACEMENT THERAPY
     Dosage: 0.625 MG DAILY, ORAL
     Route: 048
     Dates: start: 19860101, end: 20020101
  2. ACETYLSALICYLIC ACID SRT [Concomitant]
  3. METOPROLOL (METOPROLOL) [Concomitant]

REACTIONS (4)
  - CEREBROVASCULAR ACCIDENT [None]
  - CONDITION AGGRAVATED [None]
  - FLUID RETENTION [None]
  - HYPERTENSION [None]
